FAERS Safety Report 18301617 (Version 1)
Quarter: 2020Q3

REPORT INFORMATION
  Report Type: Report from Study
  Country: US (occurrence: US)
  Receive Date: 20200923
  Receipt Date: 20200923
  Transmission Date: 20201103
  Serious: Yes (Other)
  Sender: FDA-Public Use
  Company Number: NVSC2020US253846

PATIENT
  Sex: Female

DRUGS (1)
  1. XIIDRA [Suspect]
     Active Substance: LIFITEGRAST
     Indication: PRODUCT USED FOR UNKNOWN INDICATION
     Dosage: 5 %, BID
     Route: 065

REACTIONS (9)
  - Eye pain [Unknown]
  - Rheumatoid arthritis [Unknown]
  - Asthenia [Unknown]
  - Eye irritation [Unknown]
  - Eye discharge [Unknown]
  - Blindness transient [Unknown]
  - Photophobia [Unknown]
  - Product container issue [Unknown]
  - Vision blurred [Unknown]
